FAERS Safety Report 25622685 (Version 1)
Quarter: 2025Q3

REPORT INFORMATION
  Report Type: Spontaneous
  Country: US (occurrence: None)
  Receive Date: 20250729
  Receipt Date: 20250729
  Transmission Date: 20251021
  Serious: Yes (Hospitalization)
  Sender: FDA-CTU
  Company Number: None

PATIENT
  Age: 71 Year
  Sex: Female
  Weight: 59.4 kg

DRUGS (1)
  1. KISUNLA [Suspect]
     Active Substance: DONANEMAB-AZBT
     Dosage: 1400 MG EVERY 4 WEEKS INTRAVENOUS?
     Route: 042
     Dates: start: 20250416

REACTIONS (1)
  - Seizure [None]

NARRATIVE: CASE EVENT DATE: 20250718
